FAERS Safety Report 20994324 (Version 1)
Quarter: 2022Q2

REPORT INFORMATION
  Report Type: Spontaneous
  Country: JP (occurrence: JP)
  Receive Date: 20220622
  Receipt Date: 20220622
  Transmission Date: 20220720
  Serious: Yes (Hospitalization)
  Sender: FDA-Public Use
  Company Number: JP-DSJP-DSJ-2022-121385AA

PATIENT
  Age: 87 Year
  Sex: Female

DRUGS (2)
  1. EDOXABAN TOSYLATE [Suspect]
     Active Substance: EDOXABAN TOSYLATE
     Indication: Joint arthroplasty
     Dosage: 15MG/DAY
     Route: 065
     Dates: start: 2020
  2. EDOXABAN TOSYLATE [Suspect]
     Active Substance: EDOXABAN TOSYLATE
     Indication: Embolism venous
     Dosage: 30MG/DAY
     Route: 065

REACTIONS (1)
  - Embolism venous [Not Recovered/Not Resolved]
